FAERS Safety Report 5684324-6 (Version None)
Quarter: 2008Q1

REPORT INFORMATION
  Report Type: 
  Country: None (occurrence: None)
  Receive Date: 20080328
  Receipt Date: 20080318
  Transmission Date: 20080703
  Serious: Yes (Hospitalization)
  Sender: FDA-Public Use
  Company Number: A0717914A

PATIENT
  Age: 79 Year
  Sex: Male

DRUGS (4)
  1. LANOXIN [Suspect]
     Indication: DRUG USE FOR UNKNOWN INDICATION
     Route: 065
  2. PLAVIX [Suspect]
     Indication: STENT PLACEMENT
     Dosage: 75MG PER DAY
     Route: 048
     Dates: start: 20080201
  3. ACETYLSALICYLIC ACID SRT [Concomitant]
  4. WARFARIN SODIUM [Concomitant]

REACTIONS (2)
  - BACK PAIN [None]
  - FATIGUE [None]
